FAERS Safety Report 17068621 (Version 1)
Quarter: 2019Q4

REPORT INFORMATION
  Report Type: Spontaneous
  Country: US (occurrence: US)
  Receive Date: 20191123
  Receipt Date: 20191123
  Transmission Date: 20200122
  Serious: Yes (Other)
  Sender: FDA-Public Use
  Company Number: US-NAPPMUNDI-USA-2019-0147400

PATIENT
  Sex: Male

DRUGS (8)
  1. HYDROCODONE BITARTRATE/ACETAMINOPHEN [Suspect]
     Active Substance: ACETAMINOPHEN\HYDROCODONE BITARTRATE
     Indication: BREAKTHROUGH PAIN
     Dosage: 2 X 10 MG, UNK
     Route: 048
  2. HYDROCODONE                        /00060002/ [Suspect]
     Active Substance: HYDROCODONE
     Dosage: 10 MG, BID
     Route: 048
  3. HYSINGLA ER [Suspect]
     Active Substance: HYDROCODONE BITARTRATE
     Indication: SPONDYLITIS
     Dosage: 40 MG, Q24H
     Route: 048
     Dates: start: 2016
  4. OXYCODONE HYDROCHLORIDE (SIMILAR TO NDA 22-272) [Suspect]
     Active Substance: OXYCODONE HYDROCHLORIDE
     Indication: PAIN
     Dosage: UNK
     Route: 048
  5. HYDROCODONE                        /00060002/ [Suspect]
     Active Substance: HYDROCODONE
     Indication: BREAKTHROUGH PAIN
     Dosage: 5 MG, QID
     Route: 048
     Dates: start: 1999
  6. HYDROCODONE                        /00060002/ [Suspect]
     Active Substance: HYDROCODONE
     Dosage: 7.5 MG, QID
     Route: 048
     Dates: start: 1999
  7. HYDROCODONE                        /00060002/ [Suspect]
     Active Substance: HYDROCODONE
     Dosage: (0.5 X 10 MG) 5 MG, UNK
     Route: 048
  8. HYDROCODONE                        /00060002/ [Suspect]
     Active Substance: HYDROCODONE
     Dosage: 10 MG, Q4- 6H
     Route: 048

REACTIONS (4)
  - Drug abuse [Unknown]
  - Inadequate analgesia [Not Recovered/Not Resolved]
  - Pain [Unknown]
  - Feeling abnormal [Unknown]

NARRATIVE: CASE EVENT DATE: 2016
